FAERS Safety Report 25892849 (Version 1)
Quarter: 2025Q4

REPORT INFORMATION
  Report Type: Spontaneous
  Country: US (occurrence: US)
  Receive Date: 20251007
  Receipt Date: 20251007
  Transmission Date: 20260118
  Serious: No
  Sender: MERCK SHARP & DOHME LLC
  Company Number: US-009507513-2331971

PATIENT
  Sex: Female
  Weight: 108.8 kg

DRUGS (25)
  1. SOTATERCEPT [Suspect]
     Active Substance: SOTATERCEPT
     Indication: Product used for unknown indication
  2. SOTATERCEPT [Suspect]
     Active Substance: SOTATERCEPT
  3. SOTATERCEPT [Suspect]
     Active Substance: SOTATERCEPT
  4. SOTATERCEPT [Suspect]
     Active Substance: SOTATERCEPT
  5. REMODULIN [Suspect]
     Active Substance: TREPROSTINIL
     Indication: Pulmonary arterial hypertension
     Dosage: CONCENTRATION 10.0 MG/ML; CURRENT DOSE 0.128 UG/KG (SELF-FILL CASSETTE WITH 3 ML, RATE OF 92 MCL ...
     Route: 058
     Dates: start: 20230713
  6. AMBRISENTAN [Concomitant]
     Active Substance: AMBRISENTAN
  7. MESTINON [Concomitant]
     Active Substance: PYRIDOSTIGMINE BROMIDE
  8. PLAQUENIL [Concomitant]
     Active Substance: HYDROXYCHLOROQUINE SULFATE
  9. OMEPRAZOLE [Concomitant]
     Active Substance: OMEPRAZOLE
  10. POTASSIUM CHLORIDE [Concomitant]
     Active Substance: POTASSIUM CHLORIDE
  11. SPIRONOLACTONE [Concomitant]
     Active Substance: SPIRONOLACTONE
  12. TYLENOL [Concomitant]
     Active Substance: ACETAMINOPHEN
     Dosage: 325 MG
  13. WARFARIN SODIUM [Concomitant]
     Active Substance: WARFARIN SODIUM
  14. IMURAN [Concomitant]
     Active Substance: AZATHIOPRINE
  15. PREDNISONE [Concomitant]
     Active Substance: PREDNISONE
  16. VITAMINS [Concomitant]
     Active Substance: VITAMINS
  17. VITAMIN D3 [Concomitant]
     Active Substance: CHOLECALCIFEROL
  18. COENZYME Q10 [Concomitant]
     Active Substance: DIETARY SUPPLEMENT\UBIDECARENONE
  19. FORTEO [Concomitant]
     Active Substance: TERIPARATIDE
  20. NEURONTIN [Concomitant]
     Active Substance: GABAPENTIN
  21. FLUTICASONE PROPIONATE\SALMETEROL XINAFOATE [Concomitant]
     Active Substance: FLUTICASONE PROPIONATE\SALMETEROL XINAFOATE
  22. OXYGEN [Concomitant]
     Active Substance: OXYGEN
  23. BUMETANIDE [Concomitant]
     Active Substance: BUMETANIDE
  24. LEVOTHYROXINE SODIUM [Concomitant]
     Active Substance: LEVOTHYROXINE SODIUM
  25. CALCIUM CARBONATE [Concomitant]
     Active Substance: CALCIUM CARBONATE

REACTIONS (1)
  - Rash [Recovered/Resolved]
